FAERS Safety Report 7438392-1 (Version None)
Quarter: 2011Q2

REPORT INFORMATION
  Report Type: 
  Country: None (occurrence: None)
  Receive Date: 20110426
  Receipt Date: 20110420
  Transmission Date: 20111010
  Serious: Yes (Hospitalization)
  Sender: FDA-Public Use
  Company Number: NL-ABBOTT-11P-114-0721125-00

PATIENT
  Sex: Female

DRUGS (18)
  1. OXAZEPAM [Concomitant]
     Indication: SEDATION
     Route: 048
     Dates: start: 20101001
  2. DICLOFENAC SODIUM [Concomitant]
     Indication: PAIN
     Route: 054
  3. ALIMEMAZINE [Concomitant]
     Indication: ANTIALLERGIC THERAPY
     Route: 048
     Dates: start: 20110201
  4. METHOTREXATE [Concomitant]
     Indication: PRODUCT USED FOR UNKNOWN INDICATION
     Route: 048
     Dates: start: 20110418
  5. FOLIC ACID [Concomitant]
     Indication: VITAMIN SUPPLEMENTATION
     Route: 048
     Dates: start: 20110301
  6. ETHINYLESTRADIOL/DESOGESTREL [Concomitant]
     Indication: CONTRACEPTION
     Dosage: 30/150MCG DAILY
     Route: 048
  7. PANTOPRAZOLE SODIUM [Concomitant]
     Indication: GASTRIC DISORDER
     Route: 048
  8. PREDNISONE [Concomitant]
     Indication: INFLAMMATION
     Route: 048
     Dates: start: 20010101
  9. SIMVASTATIN [Concomitant]
     Indication: BLOOD CHOLESTEROL INCREASED
     Dosage: FC 40 DAILY
     Route: 048
  10. TEMAZEPAM [Concomitant]
     Indication: INSOMNIA
     Route: 048
     Dates: start: 20100901
  11. PANTOPRAZOLE SODIUM [Concomitant]
     Indication: PROPHYLAXIS
  12. METHOTREXATE [Concomitant]
     Indication: RHEUMATOID ARTHRITIS
     Dosage: UNKNOWN UNITS WEEKLY
     Route: 048
     Dates: start: 20110301, end: 20110418
  13. METHOTREXATE [Concomitant]
     Indication: PSORIASIS
  14. ACETAMINOPHEN W/ CODEINE [Concomitant]
     Indication: PAIN
     Dosage: 500/10MG, 4 UNITS DAILY AS NEEDED
     Route: 048
  15. TRAMADOL [Concomitant]
     Indication: PAIN
     Route: 048
  16. HUMIRA [Suspect]
     Indication: RHEUMATOID ARTHRITIS
     Route: 058
     Dates: start: 20030101, end: 20100927
  17. LOSARTAN POTASSIUM [Concomitant]
     Indication: HYPERTENSION
     Route: 048
  18. SPIRONOLACTONE [Concomitant]
     Indication: URINARY TRACT DISORDER
     Route: 048

REACTIONS (6)
  - PNEUMONIA [None]
  - NASOPHARYNGITIS [None]
  - GASTROENTERITIS VIRAL [None]
  - PULMONARY OEDEMA [None]
  - PSORIASIS [None]
  - FOOD POISONING [None]
